FAERS Safety Report 4620485-5 (Version None)
Quarter: 2005Q1

REPORT INFORMATION
  Report Type: 
  Country: None (occurrence: None)
  Receive Date: 20050324
  Receipt Date: 20050309
  Transmission Date: 20050727
  Serious: Yes (Death, Other)
  Sender: FDA-Public Use
  Company Number: 2005-0008142

PATIENT
  Age: 47 Year
  Sex: Male
  Weight: 79.3795 kg

DRUGS (10)
  1. TRUVADA [Suspect]
     Indication: HIV INFECTION
     Dosage: 1 DOSATE FORMS, 1 IN 1 D, ORAL
     Route: 048
     Dates: start: 20041001, end: 20041118
  2. VIREAD [Suspect]
     Indication: HIV INFECTION
     Dates: end: 20041118
  3. EMTRIVA [Suspect]
     Indication: HIV INFECTION
     Dates: end: 20041118
  4. VISTIDE [Suspect]
     Dosage: INTRAVENOUS
     Dates: end: 20041025
  5. KALETRA [Concomitant]
  6. ZITHROMAX [Concomitant]
  7. BACTRIM [Suspect]
  8. SPORANOX [Concomitant]
  9. XANAX [Concomitant]
  10. NEUPOGEN [Concomitant]

REACTIONS (4)
  - CATHETER RELATED INFECTION [None]
  - MEDICATION ERROR [None]
  - RENAL FAILURE ACUTE [None]
  - SEPSIS [None]
